FAERS Safety Report 20015994 (Version 1)
Quarter: 2021Q4

REPORT INFORMATION
  Report Type: Spontaneous
  Country: US (occurrence: None)
  Receive Date: 20211102
  Receipt Date: 20211102
  Transmission Date: 20220303
  Serious: No
  Sender: FDA-Public Use
  Company Number: None

PATIENT
  Sex: Male

DRUGS (4)
  1. ABIRATERONE ACETATE [Suspect]
     Active Substance: ABIRATERONE ACETATE
     Indication: Prostate cancer
     Dosage: FREQUENCY : DAILY;?
     Route: 048
     Dates: start: 20200313
  2. LASIX TAB [Concomitant]
  3. POT CHLORIDE CAP [Concomitant]
  4. TYLENOL TAB [Concomitant]

REACTIONS (2)
  - Surgery [None]
  - Therapy interrupted [None]
